FAERS Safety Report 20553260 (Version 2)
Quarter: 2022Q1

REPORT INFORMATION
  Report Type: Spontaneous
  Country: GB (occurrence: GB)
  Receive Date: 20220304
  Receipt Date: 20220310
  Transmission Date: 20220423
  Serious: Yes (Other)
  Sender: FDA-Public Use
  Company Number: GB-ASTELLAS-2018US001008

PATIENT
  Sex: Female

DRUGS (4)
  1. CETIRIZINE [Suspect]
     Active Substance: CETIRIZINE HYDROCHLORIDE
     Indication: Hypersensitivity
     Dosage: UNK (UNK UNK, UNKNOWN FREQ)
     Route: 065
  2. MIRABEGRON [Suspect]
     Active Substance: MIRABEGRON
     Indication: Hypertonic bladder
     Dosage: UNK (UNK UNK, UNKNOWN FREQ.)
     Route: 065
  3. MIRABEGRON [Suspect]
     Active Substance: MIRABEGRON
     Dosage: UNK (UNK UNK, UNKNOWN FREQ.)
     Route: 065
  4. MIRABEGRON [Suspect]
     Active Substance: MIRABEGRON
     Dosage: UNK (START DATE :12-DEC-2017 )
     Dates: end: 20171229

REACTIONS (6)
  - Blood pressure decreased [Recovered/Resolved]
  - Dizziness [Unknown]
  - Malaise [Unknown]
  - Drug interaction [Unknown]
  - Insomnia [Recovering/Resolving]
  - Illness [Unknown]

NARRATIVE: CASE EVENT DATE: 20171201
